FAERS Safety Report 10191264 (Version 2)
Quarter: 2014Q4

REPORT INFORMATION
  Report Type: Report from Study
  Country: US (occurrence: US)
  Receive Date: 20140523
  Receipt Date: 20141223
  Transmission Date: 20150528
  Serious: Yes (Other)
  Sender: FDA-Public Use
  Company Number: PHHO2014US007297

PATIENT
  Age: 60 Year
  Sex: Male
  Weight: 119.73 kg

DRUGS (8)
  1. ASPIRIN. [Concomitant]
     Active Substance: ASPIRIN
     Indication: PROPHYLAXIS
     Dosage: 81 MG
     Route: 065
     Dates: start: 20100101
  2. ACETAMINOPHEN (PARACETAMOL) [Suspect]
     Active Substance: ACETAMINOPHEN
     Indication: COUGH
     Dosage: 325 MG
     Route: 065
     Dates: start: 20140512, end: 20140512
  3. PLACEBO [Suspect]
     Active Substance: UNSPECIFIED INGREDIENT
     Indication: NON-ALCOHOLIC STEATOHEPATITIS
     Route: 048
     Dates: start: 20140214
  4. HORSE CHESTNUT EXTRACT [Concomitant]
     Active Substance: HORSE CHESTNUT
     Indication: PERIPHERAL SWELLING
     Dosage: 300 MG
     Route: 065
     Dates: start: 20130801
  5. MULTIVIT//VITAMINS NOS [Concomitant]
     Active Substance: VITAMINS
     Indication: ROUTINE HEALTH MAINTENANCE
     Dosage: 1 TAB
     Route: 065
     Dates: start: 19900101
  6. ACETAMINOPHEN (PARACETAMOL) [Suspect]
     Active Substance: ACETAMINOPHEN
     Indication: NASOPHARYNGITIS
  7. GARLIC. [Concomitant]
     Active Substance: GARLIC
     Indication: ROUTINE HEALTH MAINTENANCE
     Dosage: 75 MG
     Route: 065
     Dates: start: 20130101
  8. CALCIUM CARBONATE. [Concomitant]
     Active Substance: CALCIUM CARBONATE
     Indication: GASTROOESOPHAGEAL REFLUX DISEASE
     Dosage: 1 DF
     Route: 048
     Dates: start: 19900101

REACTIONS (2)
  - Aspartate aminotransferase increased [Not Recovered/Not Resolved]
  - Alanine aminotransferase increased [Not Recovered/Not Resolved]

NARRATIVE: CASE EVENT DATE: 20140509
